FAERS Safety Report 4852453-2 (Version None)
Quarter: 2005Q4

REPORT INFORMATION
  Report Type: 
  Country: None (occurrence: None)
  Receive Date: 20051130
  Receipt Date: 20050816
  Transmission Date: 20060501
  Serious: No
  Sender: FDA-Public Use
  Company Number: WAES 0506USA01169

PATIENT
  Age: 39 Year
  Sex: Female
  Weight: 85.2762 kg

DRUGS (4)
  1. ZETIA [Suspect]
     Indication: BLOOD CHOLESTEROL INCREASED
     Dosage: 10 MG/DAILY/PO
     Route: 048
     Dates: start: 20050527, end: 20050603
  2. CELEXA [Concomitant]
  3. MOTRIN [Concomitant]
  4. PRILOSEC [Concomitant]

REACTIONS (2)
  - DIARRHOEA [None]
  - VOMITING [None]
